FAERS Safety Report 5788279-5 (Version None)
Quarter: 2008Q2

REPORT INFORMATION
  Report Type: 
  Country: None (occurrence: None)
  Receive Date: 20080625
  Receipt Date: 20080509
  Transmission Date: 20081010
  Serious: Yes (Death)
  Sender: FDA-Public Use
  Company Number: GB-PFIZER INC-2008000817

PATIENT
  Age: 45 Year
  Sex: Female

DRUGS (5)
  1. CHANTIX [Suspect]
     Indication: SMOKING CESSATION THERAPY
     Route: 048
     Dates: start: 20071023, end: 20071126
  2. ALL OTHER THERAPEUTIC PRODUCTS [Concomitant]
  3. SUMATRIPTAN SUCCINATE [Concomitant]
     Indication: MIGRAINE
  4. VERAPAMIL [Concomitant]
     Dates: start: 20070830
  5. ANAESTHETICS, GENERAL [Concomitant]

REACTIONS (3)
  - CEREBRAL HAEMORRHAGE [None]
  - HEADACHE [None]
  - HYPERTENSION [None]
